FAERS Safety Report 8023148-1 (Version None)
Quarter: 2012Q1

REPORT INFORMATION
  Report Type: 
  Country: None (occurrence: None)
  Receive Date: 20120104
  Receipt Date: 20120104
  Transmission Date: 20120608
  Serious: Yes (Death)
  Sender: FDA-Public Use
  Company Number: US-PFIZER INC-2011309966

PATIENT
  Age: 39 Year
  Sex: Female

DRUGS (4)
  1. ETHANOL [Suspect]
  2. ALPRAZOLAM [Suspect]
  3. ACETAMINOPHEN/DIPHENHYDRAMINE [Suspect]
  4. VENLAFAXINE HCL [Suspect]

REACTIONS (1)
  - COMPLETED SUICIDE [None]
